FAERS Safety Report 25840881 (Version 1)
Quarter: 2025Q3

REPORT INFORMATION
  Report Type: Spontaneous
  Country: CN (occurrence: CN)
  Receive Date: 20250924
  Receipt Date: 20250924
  Transmission Date: 20251020
  Serious: Yes (Other)
  Sender: MYLAN
  Company Number: CN-MYLANLABS-2025M1080364

PATIENT
  Age: 58 Year
  Sex: Male
  Weight: 69 kg

DRUGS (8)
  1. LIPITOR [Suspect]
     Active Substance: ATORVASTATIN CALCIUM
     Indication: Cerebral infarction
     Dosage: 40 MILLIGRAM, QD
     Dates: start: 20250912, end: 20250915
  2. LIPITOR [Suspect]
     Active Substance: ATORVASTATIN CALCIUM
     Dosage: 40 MILLIGRAM, QD
     Route: 045
     Dates: start: 20250912, end: 20250915
  3. LIPITOR [Suspect]
     Active Substance: ATORVASTATIN CALCIUM
     Dosage: 40 MILLIGRAM, QD
     Route: 045
     Dates: start: 20250912, end: 20250915
  4. LIPITOR [Suspect]
     Active Substance: ATORVASTATIN CALCIUM
     Dosage: 40 MILLIGRAM, QD
     Dates: start: 20250912, end: 20250915
  5. ATORVASTATIN [Concomitant]
     Active Substance: ATORVASTATIN
     Dosage: 40 MILLIGRAM, QD
     Dates: start: 20250823
  6. ATORVASTATIN [Concomitant]
     Active Substance: ATORVASTATIN
     Dosage: 40 MILLIGRAM, QD
     Route: 048
     Dates: start: 20250823
  7. ATORVASTATIN [Concomitant]
     Active Substance: ATORVASTATIN
     Dosage: 40 MILLIGRAM, QD
     Route: 048
     Dates: start: 20250823
  8. ATORVASTATIN [Concomitant]
     Active Substance: ATORVASTATIN
     Dosage: 40 MILLIGRAM, QD
     Dates: start: 20250823

REACTIONS (2)
  - Hepatic enzyme increased [Unknown]
  - Product use issue [Unknown]

NARRATIVE: CASE EVENT DATE: 20250912
